FAERS Safety Report 8823629 (Version 2)
Quarter: 2012Q4

REPORT INFORMATION
  Report Type: 
  Country: US (occurrence: US)
  Receive Date: 20121003
  Receipt Date: 20121024
  Transmission Date: 20130627
  Serious: No
  Sender: FDA-Public Use
  Company Number: US-VERTEX PHARMACEUTICAL INC.-2012-021188

PATIENT
  Age: 66 Year
  Sex: Female
  Weight: 82 kg

DRUGS (6)
  1. INCIVEK [Suspect]
     Indication: HEPATITIS C
     Dosage: 750 mg, tid
     Route: 048
     Dates: start: 20120803, end: 20121026
  2. PEGASYS [Suspect]
     Indication: HEPATITIS C
     Dosage: UNK
     Route: 058
     Dates: start: 20120803
  3. RIBAVIRIN [Suspect]
     Indication: HEPATITIS C
     Dosage: 6 DF, qd
     Dates: start: 20120803, end: 20120921
  4. RIBAVIRIN [Suspect]
     Dosage: 3 DF, qd
     Dates: start: 20120922
  5. NEXIUM                             /01479302/ [Concomitant]
     Indication: DYSPEPSIA
     Dosage: 40 mg, qd
  6. ALPRAZOLAM [Concomitant]
     Indication: ANXIETY
     Dosage: 0.5 mg, qd

REACTIONS (3)
  - Abdominal pain upper [Not Recovered/Not Resolved]
  - Red blood cell count decreased [Not Recovered/Not Resolved]
  - Anal pruritus [Recovered/Resolved]
